FAERS Safety Report 10023118 (Version 2)
Quarter: 2015Q4

REPORT INFORMATION
  Report Type: Report from Study
  Country: US (occurrence: US)
  Receive Date: 20140320
  Receipt Date: 20151202
  Transmission Date: 20160304
  Serious: Yes (Other)
  Sender: FDA-Public Use
  Company Number: US-ROCHE-1348756

PATIENT
  Sex: Female

DRUGS (6)
  1. SYSTANE (HYPROMELLOSE 2910 (4000 MPA.S)) [Concomitant]
     Active Substance: HYPROMELLOSE 2910 (4000 MPA.S)
     Route: 065
  2. LUCENTIS [Suspect]
     Active Substance: RANIBIZUMAB
     Indication: NEOVASCULAR AGE-RELATED MACULAR DEGENERATION
  3. AVASTIN [Suspect]
     Active Substance: BEVACIZUMAB
     Indication: PRODUCT USED FOR UNKNOWN INDICATION
     Dosage: OD
     Route: 065
  4. PHENYLEPHRINE [Concomitant]
     Active Substance: PHENYLEPHRINE\PHENYLEPHRINE HYDROCHLORIDE
     Route: 065
  5. LUCENTIS [Suspect]
     Active Substance: RANIBIZUMAB
     Indication: NEOVASCULAR AGE-RELATED MACULAR DEGENERATION
     Route: 050
  6. MYDRIACYL [Concomitant]
     Active Substance: TROPICAMIDE
     Route: 065

REACTIONS (8)
  - Injection site pain [Unknown]
  - Localised infection [Unknown]
  - Visual impairment [Unknown]
  - Visual acuity reduced [Unknown]
  - Cataract nuclear [Unknown]
  - Off label use [Unknown]
  - Skin cancer [Unknown]
  - Retinal oedema [Unknown]
